FAERS Safety Report 18316354 (Version 4)
Quarter: 2020Q4

REPORT INFORMATION
  Report Type: Report from Study
  Country: US (occurrence: US)
  Receive Date: 20200927
  Receipt Date: 20201118
  Transmission Date: 20210113
  Serious: Yes (Other)
  Sender: FDA-Public Use
  Company Number: US-MALLINCKRODT-T202003002

PATIENT
  Age: 59 Year
  Sex: Male

DRUGS (3)
  1. GLIPIZIDE. [Concomitant]
     Active Substance: GLIPIZIDE
     Indication: PRODUCT USED FOR UNKNOWN INDICATION
     Dosage: UNK
     Route: 065
  2. REPOSITORY CORTICOTROPIN INJECTION [Suspect]
     Active Substance: CORTICOTROPIN
     Indication: NEPHROTIC SYNDROME
     Dosage: 40 UNITS, 2X/WEEK FOR ONE MONTH
     Route: 030
     Dates: start: 20200622, end: 2020
  3. REPOSITORY CORTICOTROPIN INJECTION [Suspect]
     Active Substance: CORTICOTROPIN
     Dosage: 80 UNITS TWICE WEEKLY
     Route: 030
     Dates: start: 20200723, end: 20201102

REACTIONS (22)
  - Dyspepsia [Unknown]
  - Glycosylated haemoglobin increased [Unknown]
  - Insomnia [Not Recovered/Not Resolved]
  - Therapy non-responder [Unknown]
  - Hypertension [Recovering/Resolving]
  - Abdominal discomfort [Unknown]
  - Proteinuria [Unknown]
  - Blood creatinine increased [Unknown]
  - Joint swelling [Not Recovered/Not Resolved]
  - Wound [Unknown]
  - Peripheral swelling [Recovering/Resolving]
  - Oedema [Recovering/Resolving]
  - Pain in extremity [Recovering/Resolving]
  - Pollakiuria [Not Recovered/Not Resolved]
  - Fall [Unknown]
  - Feeling abnormal [Unknown]
  - Dysphonia [Unknown]
  - Night sweats [Unknown]
  - Blood glucose increased [Recovering/Resolving]
  - Nausea [Unknown]
  - Fatigue [Unknown]
  - Feeling hot [Unknown]

NARRATIVE: CASE EVENT DATE: 2020
